FAERS Safety Report 7260543-2 (Version None)
Quarter: 2011Q1

REPORT INFORMATION
  Report Type: 
  Country: None (occurrence: None)
  Receive Date: 20110130
  Receipt Date: 20101215
  Transmission Date: 20110831
  Serious: No
  Sender: FDA-Public Use
  Company Number: US-ABBOTT-10P-163-0692765-00

PATIENT
  Sex: Female
  Weight: 70.37 kg

DRUGS (7)
  1. ENBREL [Concomitant]
     Indication: PSORIASIS
  2. HUMIRA [Suspect]
     Indication: PSORIASIS
     Dosage: 1 EVERY 2 WEEKS; GOING BACK ON HUMIRA SOON.
     Route: 058
     Dates: start: 20100201
  3. TACLONEX [Concomitant]
     Indication: PSORIASIS
     Dosage: DAILY
     Route: 061
  4. ADDERALL 10 [Concomitant]
     Indication: NARCOLEPSY
     Dosage: DAILY
  5. XANAX [Concomitant]
     Indication: PRODUCT USED FOR UNKNOWN INDICATION
     Dosage: PRN
  6. TRAMADOL HCL [Concomitant]
     Indication: PSORIATIC ARTHROPATHY
     Dosage: DAILY
  7. DIAZIDE [Concomitant]
     Indication: HYPERTENSION
     Dosage: DAILY

REACTIONS (1)
  - RASH [None]
